FAERS Safety Report 4412141-3 (Version None)
Quarter: 2004Q2

REPORT INFORMATION
  Report Type: 
  Country: None (occurrence: None)
  Receive Date: 20040630
  Receipt Date: 20040324
  Transmission Date: 20050107
  Serious: No
  Sender: FDA-Public Use
  Company Number: 04P-163-0254453-00

PATIENT
  Age: 47 Year
  Sex: Female

DRUGS (10)
  1. HUMIRA [Suspect]
     Indication: RHEUMATOID ARTHRITIS
     Dosage: 40 MG, 1 IN 1 WK, SUBCUTANEOUS (SEE IMAGE)
     Route: 058
     Dates: start: 20031201, end: 20040301
  2. HUMIRA [Suspect]
     Indication: RHEUMATOID ARTHRITIS
     Dosage: 40 MG, 1 IN 1 WK, SUBCUTANEOUS (SEE IMAGE)
     Route: 058
     Dates: start: 20040305
  3. METHOTREXATE [Concomitant]
  4. FOLIC ACID [Concomitant]
  5. RISEDRONATE SODIUM [Concomitant]
  6. AMLODIPINE BESYLATE [Concomitant]
  7. INSULIN [Concomitant]
  8. PANADEINE CI [Concomitant]
  9. ULTRACET [Concomitant]
  10. LEXAPRO [Concomitant]

REACTIONS (1)
  - HAEMORRHOIDS [None]
